FAERS Safety Report 9630684 (Version 1)
Quarter: 2013Q4

REPORT INFORMATION
  Report Type: Spontaneous
  Country: US (occurrence: US)
  Receive Date: 20131018
  Receipt Date: 20131018
  Transmission Date: 20140711
  Serious: Yes (Hospitalization)
  Sender: FDA-Public Use
  Company Number: US-TEVA-438534USA

PATIENT
  Age: 21 Year
  Sex: Female

DRUGS (2)
  1. DOXYCYCLINE [Suspect]
     Indication: UPPER RESPIRATORY TRACT INFECTION
     Dosage: 10-DAY COURSE
     Route: 065
  2. CELEXA [Concomitant]
     Indication: ANXIETY
     Route: 065

REACTIONS (1)
  - Pancreatitis [Recovered/Resolved]
